FAERS Safety Report 6150590-6 (Version None)
Quarter: 2009Q2

REPORT INFORMATION
  Report Type: 
  Country: None (occurrence: None)
  Receive Date: 20090409
  Receipt Date: 20090408
  Transmission Date: 20091009
  Serious: Yes (Death)
  Sender: FDA-Public Use
  Company Number: JP-B.I. PHARMACEUTICALS,INC./RIDGEFIELD-2009-BP-03540NB

PATIENT
  Sex: Male

DRUGS (3)
  1. MICARDIS [Suspect]
     Indication: HYPERTENSION
     Dosage: 40MG
     Route: 048
     Dates: start: 20070130, end: 20080701
  2. CONIEL [Concomitant]
     Indication: HYPERTENSION
     Dosage: 4MG
     Route: 048
     Dates: end: 20080630
  3. BAYASPIRIN [Concomitant]
     Dosage: 100MG
     Route: 048
     Dates: end: 20080630

REACTIONS (2)
  - SUBARACHNOID HAEMORRHAGE [None]
  - UNEVALUABLE EVENT [None]
